FAERS Safety Report 9261095 (Version 1)
Quarter: 2013Q2

REPORT INFORMATION
  Report Type: Spontaneous
  Country: US (occurrence: US)
  Receive Date: 20130429
  Receipt Date: 20130429
  Transmission Date: 20140414
  Serious: No
  Sender: FDA-Public Use
  Company Number: US-AMGEN-USASP2012053631

PATIENT
  Age: 29 Year
  Sex: Male
  Weight: 70.5 kg

DRUGS (2)
  1. SENSIPAR [Suspect]
     Indication: HYPERPARATHYROIDISM SECONDARY
     Dosage: 60 MG, QD
     Route: 048
     Dates: start: 20120705, end: 20120717
  2. SENSIPAR [Suspect]
     Dosage: 30 MG, QD
     Route: 048

REACTIONS (3)
  - Blood parathyroid hormone abnormal [Unknown]
  - Paraesthesia [Recovered/Resolved]
  - Blood calcium decreased [Unknown]
